FAERS Safety Report 4943019-4 (Version None)
Quarter: 2006Q1

REPORT INFORMATION
  Report Type: 
  Country: None (occurrence: None)
  Receive Date: 20060314
  Receipt Date: 20040604
  Transmission Date: 20060701
  Serious: Yes (Life-Threatening)
  Sender: FDA-Public Use
  Company Number: AR-SANOFI-SYNTHELABO-D01200402

PATIENT
  Age: 49 Year
  Sex: Male
  Weight: 82 kg

DRUGS (8)
  1. FONDAPARINUX [Suspect]
     Indication: ACUTE CORONARY SYNDROME
     Dosage: 2.5MG PER DAY
     Route: 058
     Dates: start: 20030919, end: 20030926
  2. ASPIRIN [Concomitant]
     Route: 065
  3. CLOPIDOGREL [Concomitant]
     Route: 065
  4. DILTIAZEM [Concomitant]
     Route: 048
  5. ENALAPRIL MALEATE [Concomitant]
     Route: 065
  6. NITRATES [Concomitant]
  7. PRAVASTATIN [Concomitant]
     Route: 065
  8. SIMVASTATIN [Concomitant]
     Route: 048

REACTIONS (1)
  - CATHETER RELATED COMPLICATION [None]
